FAERS Safety Report 13798141 (Version 1)
Quarter: 2017Q3

REPORT INFORMATION
  Report Type: Spontaneous
  Country: US (occurrence: US)
  Receive Date: 20170726
  Receipt Date: 20170726
  Transmission Date: 20171127
  Serious: Yes (Disabling)
  Sender: FDA-Public Use
  Company Number: None

PATIENT
  Age: 45 Year
  Sex: Female
  Weight: 57.6 kg

DRUGS (13)
  1. PEPCID AC [Concomitant]
     Active Substance: FAMOTIDINE
  2. MORPHINE [Concomitant]
     Active Substance: MORPHINE
  3. CYMBALTA [Suspect]
     Active Substance: DULOXETINE HYDROCHLORIDE
     Indication: FIBROMYALGIA
     Dosage: ?          QUANTITY:1 CAPSULE(S);?
     Route: 048
  4. MULTIVITAMIN [Concomitant]
     Active Substance: VITAMINS
  5. MAGNESIUM MALATE [Concomitant]
  6. PREMPRO [Concomitant]
     Active Substance: ESTROGENS, CONJUGATED\MEDROXYPROGESTERONE ACETATE
  7. PERCOCET [Concomitant]
     Active Substance: ACETAMINOPHEN\OXYCODONE HYDROCHLORIDE
  8. CALTRATE [Concomitant]
     Active Substance: CALCIUM CARBONATE
  9. MEGA VITAMIN B COMPLEX [Concomitant]
  10. ZINC. [Concomitant]
     Active Substance: ZINC
  11. BACLOFEN. [Concomitant]
     Active Substance: BACLOFEN
  12. BIOTIN [Concomitant]
     Active Substance: BIOTIN
  13. VITAMIN C [Concomitant]
     Active Substance: ASCORBIC ACID

REACTIONS (8)
  - Insomnia [None]
  - Wrong technique in product usage process [None]
  - Bedridden [None]
  - Vomiting projectile [None]
  - Nausea [None]
  - Fatigue [None]
  - Withdrawal syndrome [None]
  - Pain [None]

NARRATIVE: CASE EVENT DATE: 20170216
